FAERS Safety Report 25309213 (Version 1)
Quarter: 2025Q2

REPORT INFORMATION
  Report Type: Report from Study
  Country: IL (occurrence: IL)
  Receive Date: 20250513
  Receipt Date: 20250513
  Transmission Date: 20250717
  Serious: Yes (Hospitalization)
  Sender: ABBVIE
  Company Number: IL-ABBVIE-6273670

PATIENT
  Age: 70 Year
  Sex: Female

DRUGS (1)
  1. SKYRIZI [Suspect]
     Active Substance: RISANKIZUMAB-RZAA
     Indication: Crohn^s disease
     Dosage: 360MG OBI
     Route: 058
     Dates: start: 20240409

REACTIONS (6)
  - Bacteraemia [Recovered/Resolved]
  - Helicobacter infection [Recovered/Resolved]
  - Pyrexia [Recovered/Resolved]
  - Immunodeficiency [Unknown]
  - Malaise [Unknown]
  - Urinary tract infection [Recovered/Resolved]
